FAERS Safety Report 5706128-8 (Version None)
Quarter: 2008Q2

REPORT INFORMATION
  Report Type: 
  Country: None (occurrence: None)
  Receive Date: 20080415
  Receipt Date: 20080408
  Transmission Date: 20081010
  Serious: Yes (Hospitalization)
  Sender: FDA-Public Use
  Company Number: NL-TEVA-169203ISR

PATIENT
  Sex: Male
  Weight: 6 kg

DRUGS (1)
  1. METHYLDOPA [Suspect]
     Indication: HYPERTENSION
     Route: 063
     Dates: start: 20071130, end: 20080121

REACTIONS (2)
  - INSOMNIA [None]
  - RESTLESSNESS [None]
